FAERS Safety Report 13370760 (Version 2)
Quarter: 2018Q1

REPORT INFORMATION
  Report Type: Spontaneous
  Country: GB (occurrence: GB)
  Receive Date: 20170324
  Receipt Date: 20180131
  Transmission Date: 20180508
  Serious: Yes (Other)
  Sender: FDA-Public Use
  Company Number: GB-MYLANLABS-2017M1017398

PATIENT
  Age: 30 Year
  Sex: Female

DRUGS (1)
  1. CLOZARIL [Suspect]
     Active Substance: CLOZAPINE
     Indication: SCHIZOPHRENIA
     Dosage: UNK
     Route: 048
     Dates: start: 20150129

REACTIONS (2)
  - Refusal of treatment by patient [Unknown]
  - Left ventricular dysfunction [Unknown]

NARRATIVE: CASE EVENT DATE: 20170314
